FAERS Safety Report 8011981-1 (Version None)
Quarter: 2011Q4

REPORT INFORMATION
  Report Type: 
  Country: None (occurrence: None)
  Receive Date: 20111228
  Receipt Date: 20111222
  Transmission Date: 20120403
  Serious: Yes (Death)
  Sender: FDA-Public Use
  Company Number: US-GLAXOSMITHKLINE-A0959243A

PATIENT
  Age: 44 Year
  Sex: Female

DRUGS (11)
  1. TYKERB [Suspect]
     Indication: PRODUCT USED FOR UNKNOWN INDICATION
     Dosage: 250MG UNKNOWN
     Route: 048
     Dates: start: 20110701, end: 20110901
  2. AFINITOR [Suspect]
     Indication: PRODUCT USED FOR UNKNOWN INDICATION
     Dosage: 5MG PER DAY
     Route: 048
  3. XELODA [Suspect]
     Indication: PRODUCT USED FOR UNKNOWN INDICATION
     Dates: start: 20110701, end: 20110901
  4. OXYCODONE HCL [Concomitant]
     Dosage: 10MG UNKNOWN
     Route: 048
  5. DEXAMETHASONE SODIUM PHOSPHATE [Concomitant]
     Dosage: 4MG UNKNOWN
     Route: 048
  6. TARCEVA [Suspect]
     Indication: PRODUCT USED FOR UNKNOWN INDICATION
     Dosage: 150MG UNKNOWN
     Route: 048
  7. OXYCONTIN [Concomitant]
     Dosage: 30MG UNKNOWN
     Route: 048
  8. MEGACE [Concomitant]
  9. DOCUSATE [Concomitant]
     Dosage: 240MG UNKNOWN
     Route: 048
  10. ALBUTEROL [Concomitant]
     Dosage: 90MCG UNKNOWN
     Route: 055
  11. KEPPRA [Concomitant]
     Dosage: 500MG UNKNOWN
     Route: 048

REACTIONS (1)
  - DEATH [None]
